FAERS Safety Report 22845324 (Version 2)
Quarter: 2023Q4

REPORT INFORMATION
  Report Type: Spontaneous
  Country: US (occurrence: US)
  Receive Date: 20230821
  Receipt Date: 20231024
  Transmission Date: 20240109
  Serious: No
  Sender: FDA-Public Use
  Company Number: US-SA-SAC20230818000435

PATIENT
  Age: 51 Year
  Sex: Female

DRUGS (1)
  1. DUPIXENT [Suspect]
     Active Substance: DUPILUMAB
     Indication: Prurigo
     Dosage: 300 MG, QOW
     Route: 058

REACTIONS (3)
  - Pain in extremity [Unknown]
  - Temperature intolerance [Unknown]
  - Product use in unapproved indication [Unknown]

NARRATIVE: CASE EVENT DATE: 20230701
